FAERS Safety Report 5122691-2 (Version None)
Quarter: 2006Q4

REPORT INFORMATION
  Report Type: 
  Country: None (occurrence: None)
  Receive Date: 20061004
  Receipt Date: 20060913
  Transmission Date: 20070319
  Serious: Yes (Congenital Anomaly)
  Sender: FDA-Public Use
  Company Number: 380001M06SWE

PATIENT
  Sex: 0

DRUGS (3)
  1. CRINONE [Suspect]
     Indication: LUTEAL PHASE DEFICIENCY
  2. DALTEPARIN SODIUM (FRAGMIN) (DALTEPARIN SODIUM) [Suspect]
  3. FRAGMIN [Concomitant]

REACTIONS (4)
  - CONGENITAL MUSCULOSKELETAL ANOMALY [None]
  - DRUG EXPOSURE DURING PREGNANCY [None]
  - FOETAL DISORDER [None]
  - HEART DISEASE CONGENITAL [None]
